FAERS Safety Report 4862919-7 (Version None)
Quarter: 2005Q4

REPORT INFORMATION
  Report Type: 
  Country: None (occurrence: None)
  Receive Date: 20051219
  Receipt Date: 20051205
  Transmission Date: 20060501
  Serious: Yes (Other)
  Sender: FDA-Public Use
  Company Number: 2005141901

PATIENT
  Age: 35 Year
  Sex: Female
  Weight: 108.8633 kg

DRUGS (5)
  1. GENOTROPIN [Suspect]
     Indication: GROWTH HORMONE DEFICIENCY
     Dosage: 1.2 MG (1.2 MG, DAILY)
     Dates: start: 20040107
  2. THYROID TAB [Concomitant]
  3. ALBUTEROL [Concomitant]
  4. DHEA (PRASTERONE) [Concomitant]
  5. THYROID TAB [Concomitant]

REACTIONS (2)
  - OVARIAN CYST [None]
  - SLEEP APNOEA SYNDROME [None]
